FAERS Safety Report 10409381 (Version 2)
Quarter: 2014Q3

REPORT INFORMATION
  Report Type: Spontaneous
  Country: US (occurrence: US)
  Receive Date: 20140826
  Receipt Date: 20140917
  Transmission Date: 20150326
  Serious: Yes (Hospitalization)
  Sender: FDA-Public Use
  Company Number: US-SA-2014SA111366

PATIENT
  Age: 90 Year
  Sex: Male
  Weight: 83.9 kg

DRUGS (10)
  1. DEMEROL [Suspect]
     Active Substance: MEPERIDINE HYDROCHLORIDE
     Indication: CHILLS
     Dosage: PROVENGE INFUSION?IV PUSH
     Dates: start: 20140519, end: 20140519
  2. ZYTIGA [Concomitant]
     Active Substance: ABIRATERONE ACETATE
  3. MULTIVITAMINS [Concomitant]
     Active Substance: VITAMINS
  4. VITAMIN B COMPLEX [Concomitant]
     Active Substance: CYANOCOBALAMIN\DEXPANTHENOL\NIACINAMIDE\PYRIDOXINE HYDROCHLORIDE\RIBOFLAVIN 5^-PHOSPHATE SODIUM\THIAMINE HYDROCHLORIDE\VITAMIN B COMPLEX
  5. ALEVE [Concomitant]
     Active Substance: NAPROXEN SODIUM
  6. CALTRATE [Concomitant]
     Active Substance: CALCIUM CARBONATE
  7. LYCOPENE [Concomitant]
     Active Substance: LYCOPENE
  8. LEUPRORELIN [Concomitant]
     Active Substance: LEUPROLIDE ACETATE
  9. VITAMIN D3 [Concomitant]
     Active Substance: CHOLECALCIFEROL
  10. PROVENGE [Suspect]
     Active Substance: SIPULEUCEL-T
     Indication: PROSTATE CANCER
     Route: 042
     Dates: start: 20140519, end: 20140519

REACTIONS (16)
  - Temperature intolerance [Unknown]
  - Chills [Recovered/Resolved]
  - Oxygen saturation decreased [Not Recovered/Not Resolved]
  - Hypoxia [Recovered/Resolved]
  - Pollakiuria [Unknown]
  - Vomiting [Recovering/Resolving]
  - Dehydration [Unknown]
  - Atelectasis [Unknown]
  - Infusion related reaction [Recovering/Resolving]
  - Tinnitus [Unknown]
  - Pain [Unknown]
  - Nausea [Recovered/Resolved]
  - Systemic inflammatory response syndrome [Unknown]
  - Myalgia [Unknown]
  - Retching [Recovered/Resolved]
  - Tremor [Unknown]

NARRATIVE: CASE EVENT DATE: 20140519
